FAERS Safety Report 13491666 (Version 2)
Quarter: 2017Q2

REPORT INFORMATION
  Report Type: Spontaneous
  Country: US (occurrence: US)
  Receive Date: 20170427
  Receipt Date: 20170605
  Transmission Date: 20170830
  Serious: No
  Sender: FDA-Public Use
  Company Number: US-PFIZER INC-2017181955

PATIENT
  Sex: Female

DRUGS (1)
  1. XELJANZ XR [Suspect]
     Active Substance: TOFACITINIB CITRATE
     Indication: RHEUMATOID ARTHRITIS
     Dosage: 11 MG, UNK

REACTIONS (12)
  - Cervical radiculopathy [Unknown]
  - Arthralgia [Recovering/Resolving]
  - Tinnitus [Not Recovered/Not Resolved]
  - Musculoskeletal stiffness [Not Recovered/Not Resolved]
  - Dry eye [Not Recovered/Not Resolved]
  - Synovitis [Recovered/Resolved]
  - Groin pain [Unknown]
  - Hypoaesthesia [Not Recovered/Not Resolved]
  - Tenosynovitis [Unknown]
  - Migraine [Recovering/Resolving]
  - Arthralgia [Recovered/Resolved]
  - Bone cyst [Unknown]
